FAERS Safety Report 5083849-4 (Version None)
Quarter: 2006Q3

REPORT INFORMATION
  Report Type: 
  Country: None (occurrence: None)
  Receive Date: 20060818
  Receipt Date: 20060718
  Transmission Date: 20061208
  Serious: Yes (Hospitalization)
  Sender: FDA-Public Use
  Company Number: DE-MERCK-0607DEU00176

PATIENT
  Age: 42 Year
  Sex: Male
  Weight: 90 kg

DRUGS (6)
  1. VYTORIN [Suspect]
     Indication: LIPID METABOLISM DISORDER
     Route: 048
     Dates: start: 20050101, end: 20060701
  2. VYTORIN [Suspect]
     Route: 048
     Dates: start: 20060701
  3. VALSARTAN [Concomitant]
     Indication: HYPERTENSION
     Route: 065
  4. TORSEMIDE [Concomitant]
     Indication: HYPERTENSION
     Route: 065
  5. PANTOPRAZOLE SODIUM [Concomitant]
     Indication: PROPHYLAXIS
     Route: 065
  6. ALLOPURINOL [Concomitant]
     Indication: HYPERURICAEMIA
     Route: 065

REACTIONS (4)
  - HEPATIC STEATOSIS [None]
  - HYPERLIPIDAEMIA [None]
  - HYPERTRIGLYCERIDAEMIA [None]
  - PANCREATITIS ACUTE [None]
